FAERS Safety Report 18130231 (Version 1)
Quarter: 2020Q3

REPORT INFORMATION
  Report Type: Spontaneous
  Country: US (occurrence: US)
  Receive Date: 20200810
  Receipt Date: 20200810
  Transmission Date: 20201103
  Serious: Yes (Other)
  Sender: FDA-Public Use
  Company Number: None

PATIENT
  Age: 63 Year
  Sex: Female
  Weight: 93.2 kg

DRUGS (14)
  1. REMDESIVIR. [Suspect]
     Active Substance: REMDESIVIR
     Indication: COVID-19 PNEUMONIA
     Dosage: ?          OTHER FREQUENCY:200MGX1,100MGX4;?
     Route: 042
     Dates: start: 20200803, end: 20200806
  2. ENOXAPARIN 30MG SUBQ Q12H [Concomitant]
     Dates: start: 20200803
  3. ATORVASTATIN 20MG PO DAILY [Concomitant]
     Dates: start: 20200803
  4. BENZONATATE 200MG PO Q8H [Concomitant]
     Dates: start: 20200803
  5. DEXAMETHASONE 6MG IV DAILY [Concomitant]
     Dates: start: 20200803, end: 20200808
  6. LOSARTAN 50MG PO DAILY [Concomitant]
     Dates: start: 20200804
  7. ZINC SULFATE 220MG PO DAILY [Concomitant]
     Dates: start: 20200803
  8. AZITHROMYCIN 500MG IV DAILY [Concomitant]
     Dates: start: 20200803, end: 20200808
  9. CEFTRIAXONE 1G IV DAILY [Concomitant]
     Dates: start: 20200803, end: 20200808
  10. METOPROLOL SUCCINATE 25MG PO DAILY [Concomitant]
     Dates: start: 20200803
  11. VITAMIN C 1000MG PO DAILY [Concomitant]
     Dates: start: 20200803
  12. DEXAMETHASONE 10MG IV DAILY [Concomitant]
     Dates: start: 20200803, end: 20200808
  13. CULTURELLE 1 CAP PO TID [Concomitant]
     Dates: start: 20200805
  14. LEVOTHYROXINE 112MCG PO DAILY [Concomitant]
     Dates: start: 20200804

REACTIONS (4)
  - Aspartate aminotransferase increased [None]
  - Liver function test increased [None]
  - Alanine aminotransferase increased [None]
  - Blood alkaline phosphatase increased [None]

NARRATIVE: CASE EVENT DATE: 20200807
